FAERS Safety Report 5991935-7 (Version None)
Quarter: 2008Q4

REPORT INFORMATION
  Report Type: 
  Country: None (occurrence: None)
  Receive Date: 20081211
  Receipt Date: 20080509
  Transmission Date: 20090506
  Serious: No
  Sender: FDA-Public Use
  Company Number: US-AMGEN-KDL271869

PATIENT
  Sex: Female
  Weight: 49.9 kg

DRUGS (2)
  1. ENBREL [Suspect]
     Indication: RHEUMATOID ARTHRITIS
     Route: 058
     Dates: start: 19990524
  2. NSAID'S [Concomitant]

REACTIONS (2)
  - CELLULITIS [None]
  - RHEUMATOID ARTHRITIS [None]
